FAERS Safety Report 25988772 (Version 1)
Quarter: 2025Q4

REPORT INFORMATION
  Report Type: Spontaneous
  Country: EU (occurrence: EU)
  Receive Date: 20251103
  Receipt Date: 20251103
  Transmission Date: 20260117
  Serious: Yes (Other)
  Sender: Thea Pharma
  Company Number: None

PATIENT
  Age: 36 Year
  Sex: Male

DRUGS (1)
  1. LATANOPROST [Suspect]
     Active Substance: LATANOPROST
     Indication: Conjunctivitis viral
     Dosage: 4 DROPS/8 HOURS
     Route: 047
     Dates: start: 20251006, end: 20251008

REACTIONS (2)
  - Uveitis [Unknown]
  - Medication error [Unknown]

NARRATIVE: CASE EVENT DATE: 20251006
